FAERS Safety Report 8196296 (Version 5)
Quarter: 2014Q3

REPORT INFORMATION
  Report Type: Spontaneous
  Country: JP (occurrence: JP)
  Receive Date: 20111024
  Receipt Date: 20140817
  Transmission Date: 20150326
  Serious: Yes (Other)
  Sender: FDA-Public Use
  Company Number: PHHY2011JP92809

PATIENT
  Age: 48 Year
  Sex: Female

DRUGS (4)
  1. ZOMETA [Suspect]
     Active Substance: ZOLEDRONIC ACID
     Indication: BREAST CANCER
     Dosage: 4 MG, UNK
     Route: 042
     Dates: start: 201012
  2. HORMONES [Concomitant]
     Active Substance: UNSPECIFIED INGREDIENT
     Dates: start: 200609
  3. ZOMETA [Suspect]
     Active Substance: ZOLEDRONIC ACID
     Indication: METASTASES TO BONE
     Dosage: 4 MG, UNK
     Route: 042
     Dates: start: 200609, end: 201009
  4. TAMOXIFEN [Concomitant]
     Active Substance: TAMOXIFEN

REACTIONS (13)
  - Osteonecrosis of jaw [Recovered/Resolved]
  - Osteomyelitis [Recovered/Resolved]
  - Pain [Unknown]
  - Purulent discharge [Unknown]
  - Soft tissue infection [Unknown]
  - Gingivitis [Unknown]
  - Impaired healing [Unknown]
  - Paralysis [Recovered/Resolved]
  - Swelling [Unknown]
  - Fistula [Unknown]
  - Osteolysis [Unknown]
  - Erythema [Unknown]
  - Exposed bone in jaw [Unknown]

NARRATIVE: CASE EVENT DATE: 201006
